FAERS Safety Report 10078762 (Version 1)
Quarter: 2014Q2

REPORT INFORMATION
  Report Type: Spontaneous
  Country: US (occurrence: None)
  Receive Date: 20140414
  Receipt Date: 20140414
  Transmission Date: 20141212
  Serious: Yes (Hospitalization)
  Sender: FDA-Public Use
  Company Number: None

PATIENT
  Age: 51 Year
  Sex: Male
  Weight: 63.3 kg

DRUGS (1)
  1. CIPROFLOXACIN [Suspect]

REACTIONS (7)
  - Purulence [None]
  - Sepsis [None]
  - Wound secretion [None]
  - Clostridium test positive [None]
  - Leukocytosis [None]
  - Diarrhoea [None]
  - Self-medication [None]
